FAERS Safety Report 4649418-2 (Version None)
Quarter: 2005Q2

REPORT INFORMATION
  Report Type: 
  Country: None (occurrence: None)
  Receive Date: 20050331
  Receipt Date: 20050105
  Transmission Date: 20051028
  Serious: No
  Sender: FDA-Public Use
  Company Number: 05P-163-0285391-00

PATIENT
  Age: 77 Year
  Sex: Male
  Weight: 81.6475 kg

DRUGS (5)
  1. HUMIRA [Suspect]
     Indication: RHEUMATOID ARTHRITIS
     Dosage: 40 MG, 1 IN 2 WK, SUBCUTANEOUS
     Route: 058
     Dates: start: 20050104
  2. PREDNISONE TAB [Concomitant]
  3. TERAZOSIN HCL [Concomitant]
  4. LOSARTAN POTASSIUM [Concomitant]
  5. METOPROLOL [Concomitant]

REACTIONS (1)
  - INJECTION SITE IRRITATION [None]
